FAERS Safety Report 6390592-8 (Version None)
Quarter: 2009Q4

REPORT INFORMATION
  Report Type: 
  Country: None (occurrence: None)
  Receive Date: 20091006
  Receipt Date: 20090928
  Transmission Date: 20100525
  Serious: Yes (Hospitalization)
  Sender: FDA-Public Use
  Company Number: US-JNJFOC-20090907730

PATIENT
  Sex: Female
  Weight: 57.15 kg

DRUGS (7)
  1. INFLIXIMAB [Suspect]
     Indication: CROHN'S DISEASE
     Route: 042
     Dates: start: 20081110, end: 20090828
  2. PEPCID [Concomitant]
  3. PREDNISONE [Concomitant]
  4. PREDNISONE [Concomitant]
  5. NEURONTIN [Concomitant]
  6. ERYTHROMYCIN [Concomitant]
  7. MIRALAX [Concomitant]

REACTIONS (4)
  - DYSPNOEA [None]
  - HAEMATEMESIS [None]
  - IMPAIRED GASTRIC EMPTYING [None]
  - IRRITABLE BOWEL SYNDROME [None]
